FAERS Safety Report 9979403 (Version 2)
Quarter: 2016Q1

REPORT INFORMATION
  Report Type: Report from Study
  Country: PR (occurrence: PR)
  Receive Date: 20140306
  Receipt Date: 20160201
  Transmission Date: 20160526
  Serious: No
  Sender: FDA-Public Use
  Company Number: PR-ABBVIE-13P-131-1170286-00

PATIENT
  Age: 36 Year
  Sex: Female
  Weight: 46.76 kg

DRUGS (6)
  1. FOLIC ACID. [Concomitant]
     Active Substance: FOLIC ACID
     Indication: VITAMIN SUPPLEMENTATION
     Route: 048
     Dates: start: 201211
  2. METHOTREXATE [Concomitant]
     Active Substance: METHOTREXATE
     Indication: ARTHRITIS
     Route: 058
  3. HUMIRA [Suspect]
     Active Substance: ADALIMUMAB
     Indication: PSORIATIC ARTHROPATHY
     Route: 058
     Dates: start: 201211, end: 201304
  4. SULINDAC. [Concomitant]
     Active Substance: SULINDAC
     Indication: PAIN
     Route: 048
     Dates: start: 201409
  5. AMITRIPTYLINE [Concomitant]
     Active Substance: AMITRIPTYLINE
     Indication: PAIN
     Dosage: 1 AT HOUR SLEEP
     Route: 048
     Dates: start: 201211, end: 201408
  6. METOPROLOL. [Concomitant]
     Active Substance: METOPROLOL
     Indication: ARRHYTHMIA
     Route: 048
     Dates: start: 201304

REACTIONS (2)
  - Palpitations [Unknown]
  - Injection site cellulitis [Recovered/Resolved]

NARRATIVE: CASE EVENT DATE: 201304
